FAERS Safety Report 20893121 (Version 1)
Quarter: 2022Q2

REPORT INFORMATION
  Report Type: Spontaneous
  Country: CN (occurrence: CN)
  Receive Date: 20220531
  Receipt Date: 20220531
  Transmission Date: 20220721
  Serious: Yes (Hospitalization, Other)
  Sender: FDA-Public Use
  Company Number: CN-PRA-001219

PATIENT
  Age: 61 Year
  Sex: Male

DRUGS (2)
  1. METHYLPREDNISOLONE [Suspect]
     Active Substance: METHYLPREDNISOLONE
     Indication: Encephalomyelitis
     Route: 042
  2. METHYLPREDNISOLONE [Suspect]
     Active Substance: METHYLPREDNISOLONE
     Indication: Encephalomyelitis
     Route: 048

REACTIONS (5)
  - Paraplegia [Recovering/Resolving]
  - Therapeutic product effect incomplete [Unknown]
  - Alpha haemolytic streptococcal infection [Unknown]
  - Psoas abscess [Unknown]
  - Product use in unapproved indication [Unknown]
